FAERS Safety Report 6212462-8 (Version None)
Quarter: 2009Q2

REPORT INFORMATION
  Report Type: 
  Country: None (occurrence: None)
  Receive Date: 20090603
  Receipt Date: 20090526
  Transmission Date: 20091009
  Serious: Yes (Hospitalization)
  Sender: FDA-Public Use
  Company Number: FR-ASTRAZENECA-2009CG01011

PATIENT
  Age: 27161 Day
  Sex: Female

DRUGS (4)
  1. NEXIUM [Suspect]
     Route: 048
     Dates: start: 20090304, end: 20090306
  2. NEXIUM [Suspect]
     Route: 048
     Dates: start: 20090312, end: 20090324
  3. HYZAAR [Concomitant]
     Indication: HYPERTENSION
     Route: 048
  4. LIPANOR [Concomitant]
     Indication: HYPERCHOLESTEROLAEMIA
     Route: 048

REACTIONS (2)
  - ANAEMIA [None]
  - NEUTROPENIA [None]
